FAERS Safety Report 17674687 (Version 2)
Quarter: 2021Q2

REPORT INFORMATION
  Report Type: Spontaneous
  Country: US (occurrence: US)
  Receive Date: 20200416
  Receipt Date: 20210416
  Transmission Date: 20210716
  Serious: Yes (Hospitalization, Other)
  Sender: FDA-Public Use
  Company Number: US-ASTRAZENECA-2020SE49220

PATIENT
  Age: 15856 Day
  Sex: Male
  Weight: 127 kg

DRUGS (1)
  1. BRILINTA [Suspect]
     Active Substance: TICAGRELOR
     Indication: STENT PLACEMENT
     Route: 048
     Dates: start: 201902, end: 202003

REACTIONS (6)
  - Neck pain [Unknown]
  - Dysstasia [Unknown]
  - Haemorrhage [Unknown]
  - Paralysis [Unknown]
  - Thrombosis [Unknown]
  - Haematoma [Unknown]

NARRATIVE: CASE EVENT DATE: 20190301
